FAERS Safety Report 25089184 (Version 1)
Quarter: 2025Q1

REPORT INFORMATION
  Report Type: Spontaneous
  Country: US (occurrence: None)
  Receive Date: 20250317
  Receipt Date: 20250317
  Transmission Date: 20250408
  Serious: Yes (Hospitalization)
  Sender: FDA-CTU
  Company Number: None

PATIENT
  Age: 78 Year
  Sex: Male

DRUGS (1)
  1. ASCIMINIB [Suspect]
     Active Substance: ASCIMINIB
     Indication: Chronic myeloid leukaemia

REACTIONS (8)
  - Blood loss anaemia [None]
  - Haematochezia [None]
  - Diarrhoea [None]
  - Dizziness [None]
  - Vision blurred [None]
  - Balance disorder [None]
  - Lower gastrointestinal haemorrhage [None]
  - Nephrogenic anaemia [None]

NARRATIVE: CASE EVENT DATE: 20250221
